FAERS Safety Report 24271544 (Version 2)
Quarter: 2024Q4

REPORT INFORMATION
  Report Type: Report from Study
  Country: CZ (occurrence: CZ)
  Receive Date: 20240901
  Receipt Date: 20241001
  Transmission Date: 20250114
  Serious: Yes (Hospitalization)
  Sender: ABBVIE
  Company Number: CZ-ABBVIE-5899056

PATIENT
  Age: 71 Year
  Sex: Male
  Weight: 92 kg

DRUGS (7)
  1. RISANKIZUMAB [Suspect]
     Active Substance: RISANKIZUMAB
     Indication: Psoriasis
     Dosage: FREQUENCY TEXT: STANDARD CARE
     Route: 058
     Dates: start: 20211116
  2. RISANKIZUMAB [Suspect]
     Active Substance: RISANKIZUMAB
     Dosage: FREQUENCY TEXT: STANDARD CARE
     Route: 058
     Dates: start: 20211020, end: 20211115
  3. RISANKIZUMAB [Suspect]
     Active Substance: RISANKIZUMAB
     Dosage: FREQUENCY TEXT: STANDARD CARE
     Route: 058
     Dates: start: 20240827
  4. INDAPAMIDE [Concomitant]
     Active Substance: INDAPAMIDE
     Indication: Hypertension
     Route: 048
     Dates: start: 202306
  5. PERINDOPRIL ERBUMINE [Concomitant]
     Active Substance: PERINDOPRIL ERBUMINE
     Indication: Hypertension
     Route: 048
     Dates: start: 2010
  6. AMLODIPINI BESILAS [Concomitant]
     Indication: Hypertension
     Route: 048
     Dates: start: 2010
  7. ASPIRIN [Concomitant]
     Active Substance: ASPIRIN
     Indication: Ischaemic heart disease prophylaxis
     Route: 048
     Dates: start: 2010

REACTIONS (1)
  - Appendix disorder [Recovered/Resolved]

NARRATIVE: CASE EVENT DATE: 20240708
